FAERS Safety Report 5443904-3 (Version None)
Quarter: 2007Q3

REPORT INFORMATION
  Report Type: 
  Country: None (occurrence: None)
  Receive Date: 20070905
  Receipt Date: 20070831
  Transmission Date: 20080115
  Serious: Yes (Other)
  Sender: FDA-Public Use
  Company Number: DE-BOEHRINGER INGELHEIM PHARMACEUTICALS, INC.-2007-DE-05206DE

PATIENT
  Sex: Female

DRUGS (1)
  1. CATAPRESAN [Suspect]
     Indication: HYPERTENSION
     Dates: start: 20030201

REACTIONS (3)
  - DRUG DEPENDENCE [None]
  - FATIGUE [None]
  - HYPERTENSIVE CRISIS [None]
